FAERS Safety Report 9708583 (Version 1)
Quarter: 2013Q4

REPORT INFORMATION
  Report Type: Spontaneous
  Country: CA (occurrence: CA)
  Receive Date: 20131125
  Receipt Date: 20131125
  Transmission Date: 20140711
  Serious: Yes (Other)
  Sender: FDA-Public Use
  Company Number: CA-ASTRAZENECA-2013SE83542

PATIENT
  Age: 59 Year
  Sex: Male

DRUGS (5)
  1. ATACAND PLUS [Suspect]
     Dosage: 6 + 12.5 MG
     Route: 048
  2. ATACAND PLUS [Suspect]
     Dosage: 32 + 12.5 MG
     Route: 048
  3. NEXIUM [Suspect]
     Route: 048
  4. CRESTOR [Suspect]
     Route: 048
  5. CRESTOR [Suspect]
     Dosage: INCREASED DOSE
     Route: 048
     Dates: start: 201308

REACTIONS (3)
  - Erectile dysfunction [Unknown]
  - Myalgia [Unknown]
  - Dizziness [Unknown]
